FAERS Safety Report 9247557 (Version 1)
Quarter: 2013Q1

REPORT INFORMATION
  Report Type: Spontaneous
  Country: US (occurrence: None)
  Receive Date: 20121130
  Receipt Date: 20121130
  Transmission Date: 20140127
  Serious: Yes (Hospitalization)
  Sender: FDA-Public Use
  Company Number: 339505

PATIENT
  Age: 48 Year
  Sex: Female
  Weight: 57.8 kg

DRUGS (3)
  1. LEVEMIR FLEXPEN (INSULIN DETEMIR) SOLUTION FOR INJECTION, .0024MOL/L [Suspect]
     Indication: TYPE 2 DIABETES MELLITUS
     Dosage: 15 U, QD , SUBCUTANEOUS
     Route: 058
     Dates: start: 20110301, end: 201110
  2. NOVOLOG FLEXPEN (INSULIN ASPART) SOLUTION FOR INJECTION, 100 U/ML [Suspect]
     Indication: TYPE 2 DIABETES MELLITUS
     Dosage: SLIDING SCALE , SUBCUTANEOUS
     Dates: start: 20110301, end: 201110
  3. VICODIN (HYDROCODONE BITARTRATE, PARACETAMOL) [Suspect]
     Indication: BACK PAIN
     Route: 048

REACTIONS (4)
  - Rash pruritic [None]
  - Weight increased [None]
  - Injection site haematoma [None]
  - Injection site haemorrhage [None]
